FAERS Safety Report 5177201-0 (Version None)
Quarter: 2006Q4

REPORT INFORMATION
  Report Type: 
  Country: None (occurrence: None)
  Receive Date: 20061218
  Receipt Date: 20061211
  Transmission Date: 20070319
  Serious: Yes (Hospitalization, Other)
  Sender: FDA-Public Use
  Company Number: HK-BRISTOL-MYERS SQUIBB COMPANY-13608351

PATIENT
  Age: 55 Year
  Sex: Female

DRUGS (6)
  1. CYCLOPHOSPHAMIDE [Suspect]
     Indication: BREAST CANCER
     Route: 042
  2. DOXORUBICIN HCL [Suspect]
     Indication: BREAST CANCER
  3. METHOTREXATE [Suspect]
     Indication: BREAST CANCER
     Route: 042
  4. FLUOROURACIL [Concomitant]
     Indication: BREAST CANCER
     Route: 042
  5. DOCETAXEL [Concomitant]
     Indication: BREAST CANCER
  6. NEUPOGEN [Concomitant]

REACTIONS (9)
  - ABDOMINAL PAIN [None]
  - CARDIAC FAILURE [None]
  - DYSURIA [None]
  - FURUNCLE [None]
  - MUCOSAL INFLAMMATION [None]
  - NEUTROPENIA [None]
  - OEDEMA PERIPHERAL [None]
  - ORAL PAIN [None]
  - PHARYNGOLARYNGEAL PAIN [None]
